FAERS Safety Report 19413752 (Version 1)
Quarter: 2021Q2

REPORT INFORMATION
  Report Type: Spontaneous
  Country: CA (occurrence: CA)
  Receive Date: 20210615
  Receipt Date: 20210615
  Transmission Date: 20210717
  Serious: Yes (Other)
  Sender: FDA-Public Use
  Company Number: CA-JNJFOC-20210625187

PATIENT
  Age: 31 Year
  Sex: Male
  Weight: 131 kg

DRUGS (2)
  1. AZATHIOPRINE. [Concomitant]
     Active Substance: AZATHIOPRINE
  2. INFLIXIMAB, RECOMBINANT [Suspect]
     Active Substance: INFLIXIMAB
     Indication: COLITIS ULCERATIVE
     Route: 042

REACTIONS (11)
  - Hepatic steatosis [Unknown]
  - Vomiting [Unknown]
  - Off label use [Unknown]
  - C-reactive protein increased [Unknown]
  - Malaise [Unknown]
  - Blood pressure fluctuation [Unknown]
  - Nausea [Unknown]
  - Intentional product use issue [Unknown]
  - Diabetes mellitus [Unknown]
  - Weight decreased [Unknown]
  - Condition aggravated [Unknown]
